FAERS Safety Report 16585563 (Version 3)
Quarter: 2019Q3

REPORT INFORMATION
  Report Type: Spontaneous
  Country: RO (occurrence: RO)
  Receive Date: 20190717
  Receipt Date: 20190729
  Transmission Date: 20191004
  Serious: Yes (Death)
  Sender: FDA-Public Use
  Company Number: RO-ELI_LILLY_AND_COMPANY-RO201907006493

PATIENT
  Age: 45 Year
  Sex: Male

DRUGS (1)
  1. TALTZ [Suspect]
     Active Substance: IXEKIZUMAB
     Indication: PSORIASIS
     Dosage: UNK, UNKNOWN
     Route: 065
     Dates: start: 201901

REACTIONS (4)
  - Oropharyngeal discomfort [Unknown]
  - Anxiety [Unknown]
  - Death [Fatal]
  - Feeling abnormal [Unknown]

NARRATIVE: CASE EVENT DATE: 20190711
